FAERS Safety Report 12722608 (Version 2)
Quarter: 2016Q3

REPORT INFORMATION
  Report Type: Spontaneous
  Country: FR (occurrence: FR)
  Receive Date: 20160907
  Receipt Date: 20160922
  Transmission Date: 20161109
  Serious: Yes (Congenital Anomaly)
  Sender: FDA-Public Use
  Company Number: FR-ALLERGAN-1667945US

PATIENT
  Age: 31 Year
  Sex: Female

DRUGS (3)
  1. ESMYA [Suspect]
     Active Substance: ULIPRISTAL ACETATE
     Indication: UTERINE LEIOMYOMA
     Dosage: UNK
     Route: 064
     Dates: start: 201511
  2. ESMYA [Suspect]
     Active Substance: ULIPRISTAL ACETATE
     Dosage: UNK
     Route: 064
     Dates: start: 201602
  3. TARDYFERON [Concomitant]
     Active Substance: FERROUS SULFATE
     Indication: PRODUCT USED FOR UNKNOWN INDICATION
     Dosage: 80 MG, UNK

REACTIONS (3)
  - Encephalocele [Unknown]
  - Pregnancy [Unknown]
  - Abortion induced [Unknown]

NARRATIVE: CASE EVENT DATE: 20160308
